FAERS Safety Report 11720198 (Version 1)
Quarter: 2015Q4

REPORT INFORMATION
  Report Type: Spontaneous
  Country: JP (occurrence: JP)
  Receive Date: 20151110
  Receipt Date: 20151110
  Transmission Date: 20160304
  Serious: Yes (Death, Other)
  Sender: FDA-Public Use
  Company Number: JP-TEVA-606236ISR

PATIENT
  Age: 61 Year
  Sex: Female

DRUGS (3)
  1. E-FEN BUCCAL [Suspect]
     Active Substance: FENTANYL CITRATE
     Route: 002
     Dates: start: 20151005, end: 20151008
  2. E-FEN BUCCAL [Suspect]
     Active Substance: FENTANYL CITRATE
     Indication: ANXIETY
     Route: 002
     Dates: start: 20151001, end: 20151004
  3. FENTOS [Suspect]
     Active Substance: FENTANYL
     Dosage: 4MG TO 6 MG
     Route: 062

REACTIONS (6)
  - Lung neoplasm malignant [Fatal]
  - Product use issue [Unknown]
  - Drug level increased [Unknown]
  - Somnolence [Recovered/Resolved]
  - Intentional product use issue [Unknown]
  - Respiratory depression [Recovered/Resolved]

NARRATIVE: CASE EVENT DATE: 20151005
